FAERS Safety Report 14624255 (Version 1)
Quarter: 2018Q1

REPORT INFORMATION
  Report Type: Report from Study
  Country: None (occurrence: DE)
  Receive Date: 20180312
  Receipt Date: 20180312
  Transmission Date: 20180509
  Serious: Yes (Hospitalization)
  Sender: FDA-Public Use
  Company Number: DE-ABBVIE-18K-062-2280936-00

PATIENT
  Age: 79 Year
  Sex: Male

DRUGS (5)
  1. LEVOCARB [Concomitant]
     Active Substance: CARBIDOPA\LEVODOPA
     Indication: PRODUCT USED FOR UNKNOWN INDICATION
  2. DUODOPA [Suspect]
     Active Substance: CARBIDOPA\LEVODOPA
     Route: 050
     Dates: start: 20180308
  3. PANTOZOL [Concomitant]
     Active Substance: PANTOPRAZOLE SODIUM
     Indication: PRODUCT USED FOR UNKNOWN INDICATION
  4. DUODOPA [Suspect]
     Active Substance: CARBIDOPA\LEVODOPA
     Dosage: MD:8.0ML; CRD: 4.0ML/H ED: 1.5ML
     Route: 050
     Dates: start: 20180217, end: 20180303
  5. DUODOPA [Suspect]
     Active Substance: CARBIDOPA\LEVODOPA
     Indication: PARKINSON^S DISEASE
     Dosage: MD: 9.7ML; CRD: 3.5ML/H; ED: 2.0ML
     Route: 050
     Dates: start: 20160811, end: 20180216

REACTIONS (4)
  - Fall [Recovered/Resolved]
  - Loss of consciousness [Recovered/Resolved]
  - Head injury [Recovered/Resolved]
  - Fatigue [Not Recovered/Not Resolved]

NARRATIVE: CASE EVENT DATE: 20180217
